FAERS Safety Report 5656767-8 (Version None)
Quarter: 2008Q1

REPORT INFORMATION
  Report Type: 
  Country: None (occurrence: None)
  Receive Date: 20080310
  Receipt Date: 20080229
  Transmission Date: 20080703
  Serious: Yes (Hospitalization)
  Sender: FDA-Public Use
  Company Number: US-PURDUE-USA_2008_0031837

PATIENT
  Age: 62 Year
  Sex: Female

DRUGS (2)
  1. OXYCONTIN [Suspect]
     Indication: DRUG USE FOR UNKNOWN INDICATION
     Route: 048
  2. SIMETHICONE [Suspect]
     Indication: FLATULENCE
     Route: 048
     Dates: start: 20071001

REACTIONS (3)
  - CONSTIPATION [None]
  - HERNIA OBSTRUCTIVE [None]
  - INTESTINAL OBSTRUCTION [None]
